FAERS Safety Report 6696825-2 (Version None)
Quarter: 2010Q2

REPORT INFORMATION
  Report Type: 
  Country: None (occurrence: None)
  Receive Date: 20100426
  Receipt Date: 20100414
  Transmission Date: 20101027
  Serious: Yes (Hospitalization)
  Sender: FDA-Public Use
  Company Number: JP-SANOFI-AVENTIS-2010SA021423

PATIENT
  Age: 59 Year
  Sex: Female
  Weight: 58.1 kg

DRUGS (11)
  1. DOGMATYL [Suspect]
     Route: 048
     Dates: start: 20080221
  2. MYSLEE [Suspect]
     Route: 048
     Dates: start: 20080221
  3. QUETIAPINE [Suspect]
     Route: 048
     Dates: start: 20090603, end: 20100118
  4. QUETIAPINE [Suspect]
     Route: 048
     Dates: start: 20100119, end: 20100122
  5. ATORVASTATIN CALCIUM [Concomitant]
     Indication: HYPERLIPIDAEMIA
     Route: 048
     Dates: start: 20080225
  6. RISPERDAL [Concomitant]
     Route: 048
     Dates: start: 20081212, end: 20090708
  7. RISPERDAL [Concomitant]
     Route: 048
     Dates: start: 20100120
  8. ROHYPNOL [Concomitant]
     Route: 048
     Dates: start: 20080403
  9. RESLIN [Concomitant]
     Route: 048
     Dates: start: 20080302
  10. METHYCOBAL [Concomitant]
     Route: 048
     Dates: start: 20080221
  11. LIMAS [Concomitant]
     Indication: ANXIETY
     Route: 048
     Dates: start: 20090218

REACTIONS (3)
  - BLOOD GLUCOSE INCREASED [None]
  - GLYCOSYLATED HAEMOGLOBIN INCREASED [None]
  - HYPERGLYCAEMIA [None]
